FAERS Safety Report 13854151 (Version 1)
Quarter: 2017Q3

REPORT INFORMATION
  Report Type: Spontaneous
  Country: GB (occurrence: GB)
  Receive Date: 20170810
  Receipt Date: 20170810
  Transmission Date: 20171127
  Serious: Yes (Disabling)
  Sender: FDA-Public Use
  Company Number: GB-VIIV HEALTHCARE LIMITED-GB2017123253

PATIENT
  Age: 49 Year
  Sex: Male

DRUGS (1)
  1. TRIUMEQ [Suspect]
     Active Substance: ABACAVIR SULFATE\DOLUTEGRAVIR SODIUM\LAMIVUDINE
     Indication: ACUTE HIV INFECTION
     Dosage: 1 DF, QD,300/600/50MG ONE A DAY.
     Route: 048
     Dates: start: 20160705, end: 20170523

REACTIONS (3)
  - Eye movement disorder [Recovered/Resolved]
  - Eye ulcer [Recovered/Resolved]
  - Conversion disorder [Recovered/Resolved with Sequelae]

NARRATIVE: CASE EVENT DATE: 20170109
